FAERS Safety Report 11998803 (Version 1)
Quarter: 2016Q1

REPORT INFORMATION
  Report Type: Spontaneous
  Country: US (occurrence: None)
  Receive Date: 20160202
  Receipt Date: 20160202
  Transmission Date: 20160526
  Serious: No
  Sender: FDA-Public Use
  Company Number: None

PATIENT
  Age: 74 Year
  Sex: Male
  Weight: 91.17 kg

DRUGS (5)
  1. CANAGLIFLOZIN 100 MG [Suspect]
     Active Substance: CANAGLIFLOZIN
     Indication: DIABETES MELLITUS
     Route: 048
     Dates: start: 20150701, end: 20160101
  2. SITAGLIPTIN [Concomitant]
     Active Substance: SITAGLIPTIN
  3. ATORVASTATIN [Concomitant]
     Active Substance: ATORVASTATIN
  4. METFORMIN [Concomitant]
     Active Substance: METFORMIN HYDROCHLORIDE
  5. IRBESARTAN. [Concomitant]
     Active Substance: IRBESARTAN

REACTIONS (2)
  - Flank pain [None]
  - Abdominal pain upper [None]

NARRATIVE: CASE EVENT DATE: 20151201
